FAERS Safety Report 6768079-X (Version None)
Quarter: 2010Q2

REPORT INFORMATION
  Report Type: 
  Country: None (occurrence: None)
  Receive Date: 20100614
  Receipt Date: 20100609
  Transmission Date: 20101027
  Serious: Yes (Other)
  Sender: FDA-Public Use
  Company Number: FR-GILEAD-2010-0028851

PATIENT
  Sex: Female

DRUGS (6)
  1. ATRIPLA [Suspect]
     Indication: HIV INFECTION
     Dates: start: 20091101, end: 20100401
  2. TRUVADA [Concomitant]
     Indication: HIV INFECTION
     Dates: start: 20100423
  3. TRUVADA [Concomitant]
     Dates: end: 20091101
  4. SUSTIVA [Concomitant]
     Dates: end: 20091101
  5. LIORESAL [Concomitant]
     Indication: MUSCLE SPASTICITY
  6. LIORESAL [Concomitant]
     Indication: ENCEPHALITIS

REACTIONS (2)
  - ECTOPIC PREGNANCY [None]
  - OVARIAN CYST [None]
